FAERS Safety Report 4421023-2 (Version None)
Quarter: 2004Q3

REPORT INFORMATION
  Report Type: 
  Country: None (occurrence: None)
  Receive Date: 20040803
  Receipt Date: 20040720
  Transmission Date: 20050211
  Serious: Yes (Other)
  Sender: FDA-Public Use
  Company Number: 2004-BP-05623BP

PATIENT
  Age: 75 Year
  Sex: Female

DRUGS (8)
  1. CATAPRES-TTS-3 [Suspect]
     Indication: HYPERTENSION
     Dosage: 0.2 MG (5 MG, 1 PATCH Q WEEK), TO
     Route: 062
     Dates: start: 20031201
  2. NORVASC [Concomitant]
  3. HCT (HYDROCHLOROTHIAZIDE) (HYDROCHLOROTHIAZIDE) [Concomitant]
  4. ATENOLOL [Concomitant]
  5. ACETYLSALICYLIC ACID SRT [Concomitant]
  6. ARAVA [Concomitant]
  7. FOLIC ACID [Concomitant]
  8. LIPITOR [Concomitant]

REACTIONS (5)
  - CEREBROVASCULAR ACCIDENT [None]
  - MONOPLEGIA [None]
  - MUSCULAR WEAKNESS [None]
  - PARAESTHESIA [None]
  - PHARMACEUTICAL PRODUCT COMPLAINT [None]
